FAERS Safety Report 23747321 (Version 1)
Quarter: 2024Q2

REPORT INFORMATION
  Report Type: Spontaneous
  Country: US (occurrence: US)
  Receive Date: 20240416
  Receipt Date: 20240416
  Transmission Date: 20240716
  Serious: Yes (Death, Hospitalization)
  Sender: FDA-Public Use
  Company Number: US-MYLANLABS-2024M1032649

PATIENT
  Age: 45 Year
  Sex: Male

DRUGS (14)
  1. FONDAPARINUX [Suspect]
     Active Substance: FONDAPARINUX
     Indication: Embolism venous
     Dosage: UNK
     Route: 065
  2. FONDAPARINUX [Suspect]
     Active Substance: FONDAPARINUX
     Indication: Antiphospholipid syndrome
  3. BIVALIRUDIN [Suspect]
     Active Substance: BIVALIRUDIN
     Indication: Embolism venous
     Dosage: UNK, INFUSION
     Route: 065
  4. BIVALIRUDIN [Suspect]
     Active Substance: BIVALIRUDIN
     Indication: Antiphospholipid syndrome
  5. HYDROXYCHLOROQUINE [Suspect]
     Active Substance: HYDROXYCHLOROQUINE
     Indication: Embolism venous
     Dosage: UNK
     Route: 065
  6. HYDROXYCHLOROQUINE [Suspect]
     Active Substance: HYDROXYCHLOROQUINE
     Indication: Antiphospholipid syndrome
  7. ASPIRIN [Suspect]
     Active Substance: ASPIRIN
     Indication: Embolism venous
     Dosage: UNK
     Route: 065
  8. ASPIRIN [Suspect]
     Active Substance: ASPIRIN
     Indication: Antiphospholipid syndrome
  9. CLOPIDOGREL [Suspect]
     Active Substance: CLOPIDOGREL BISULFATE
     Indication: Embolism venous
     Dosage: UNK
     Route: 065
  10. CLOPIDOGREL [Suspect]
     Active Substance: CLOPIDOGREL BISULFATE
     Indication: Antiphospholipid syndrome
  11. TREPROSTINIL [Suspect]
     Active Substance: TREPROSTINIL
     Indication: Embolism venous
     Dosage: UNK, INFUSION
     Route: 065
  12. TREPROSTINIL [Suspect]
     Active Substance: TREPROSTINIL
     Indication: Pulmonary hypertension
  13. RITUXIMAB [Suspect]
     Active Substance: RITUXIMAB
     Indication: Antiphospholipid syndrome
     Dosage: UNK
     Route: 065
  14. HUMAN IMMUNOGLOBULIN G [Suspect]
     Active Substance: HUMAN IMMUNOGLOBULIN G
     Indication: Antiphospholipid syndrome
     Dosage: UNK
     Route: 042

REACTIONS (2)
  - Drug ineffective [Fatal]
  - Off label use [Unknown]
